FAERS Safety Report 24820418 (Version 2)
Quarter: 2025Q1

REPORT INFORMATION
  Report Type: Report from Study
  Country: JP (occurrence: JP)
  Receive Date: 20250108
  Receipt Date: 20250306
  Transmission Date: 20250409
  Serious: Yes (Death)
  Sender: SHIONOGI
  Company Number: JP-shionogi-202500000171

PATIENT
  Age: 69 Year
  Sex: Male
  Weight: 37.4 kg

DRUGS (11)
  1. CEFIDEROCOL [Suspect]
     Active Substance: CEFIDEROCOL
     Indication: Pneumonia
     Route: 041
     Dates: start: 20241217, end: 20241224
  2. ZOSYN [Concomitant]
     Active Substance: PIPERACILLIN SODIUM\TAZOBACTAM SODIUM
     Indication: Pneumonia
     Route: 065
     Dates: start: 20241214, end: 20241217
  3. DOPAMINE HYDROCHLORIDE [Concomitant]
     Active Substance: DOPAMINE HYDROCHLORIDE
     Indication: Product used for unknown indication
     Route: 065
     Dates: start: 20241216, end: 20241224
  4. DOBUTAMINE [Concomitant]
     Active Substance: DOBUTAMINE HYDROCHLORIDE
     Indication: Product used for unknown indication
     Route: 065
     Dates: start: 20241216, end: 20241224
  5. THROMBOMODULIN ALFA [Concomitant]
     Active Substance: THROMBOMODULIN ALFA
     Indication: Product used for unknown indication
     Route: 065
     Dates: start: 20241217, end: 20241222
  6. NEUART [Concomitant]
     Active Substance: ANTITHROMBIN III HUMAN
     Indication: Product used for unknown indication
     Route: 065
     Dates: start: 20241217, end: 20241219
  7. ALBUMINATE [Concomitant]
     Indication: Product used for unknown indication
     Route: 065
     Dates: start: 20241219, end: 20241219
  8. LEVOTHYROXINE [Concomitant]
     Active Substance: LEVOTHYROXINE
     Indication: Product used for unknown indication
     Route: 065
     Dates: start: 20240725, end: 20241224
  9. DAPRODUSTAT [Concomitant]
     Active Substance: DAPRODUSTAT
     Indication: Product used for unknown indication
     Route: 065
     Dates: start: 20240725, end: 20241224
  10. VIMPAT [Concomitant]
     Active Substance: LACOSAMIDE
     Indication: Product used for unknown indication
     Route: 065
     Dates: start: 20240724, end: 20241224
  11. TOLVAPTAN [Concomitant]
     Active Substance: TOLVAPTAN
     Indication: Product used for unknown indication
     Route: 048
     Dates: start: 20241213, end: 20241218

REACTIONS (1)
  - Pneumonia [Fatal]

NARRATIVE: CASE EVENT DATE: 20241224
